FAERS Safety Report 9769064 (Version 1)
Quarter: 2013Q4

REPORT INFORMATION
  Report Type: Spontaneous
  Country: US (occurrence: None)
  Receive Date: 20131216
  Receipt Date: 20131216
  Transmission Date: 20140711
  Serious: Yes (Death)
  Sender: FDA-Public Use
  Company Number: SP07311

PATIENT
  Sex: Female

DRUGS (1)
  1. XIFAXAN [Suspect]
     Route: 048
     Dates: end: 20131014

REACTIONS (2)
  - Liver disorder [None]
  - Disease progression [None]
